FAERS Safety Report 4659671-7 (Version None)
Quarter: 2005Q2

REPORT INFORMATION
  Report Type: 
  Country: None (occurrence: None)
  Receive Date: 20050420
  Receipt Date: 20050208
  Transmission Date: 20051028
  Serious: No
  Sender: FDA-Public Use
  Company Number: PHEH2005US01805

PATIENT
  Age: 85 Year
  Sex: Female

DRUGS (5)
  1. ENABLEX [Suspect]
     Route: 048
     Dates: start: 20050204
  2. DILTIAZEM [Concomitant]
  3. PREMARIN [Concomitant]
  4. EVENING PRIMROSE OIL (OENOTHERA BIENNIS OIL) [Concomitant]
  5. GLUCOSAMINE W/CHONDROITIN [Concomitant]

REACTIONS (1)
  - BLADDER SPASM [None]
